FAERS Safety Report 12559580 (Version 1)
Quarter: 2016Q3

REPORT INFORMATION
  Report Type: Report from Study
  Country: AR (occurrence: AR)
  Receive Date: 20160715
  Receipt Date: 20160715
  Transmission Date: 20161109
  Serious: Yes (Other)
  Sender: FDA-Public Use
  Company Number: PHHY2016AR096430

PATIENT
  Sex: Female

DRUGS (2)
  1. DIOVAN [Suspect]
     Active Substance: VALSARTAN
     Indication: ARRHYTHMIA
     Dosage: 160  OT, (SOME DAYS AGO)
     Route: 065
  2. DIOVAN [Suspect]
     Active Substance: VALSARTAN
     Indication: HYPERTENSION
     Dosage: 0.5 DF (160 UNITS NOT PROVIDED), BID (HALF AT NIGHT AND HALF IN THE MORNING)
     Route: 065

REACTIONS (3)
  - Influenza [Recovered/Resolved]
  - Wrong technique in product usage process [Unknown]
  - Arrhythmia [Recovered/Resolved]
